FAERS Safety Report 16924928 (Version 2)
Quarter: 2022Q2

REPORT INFORMATION
  Report Type: Spontaneous
  Country: US (occurrence: US)
  Receive Date: 20191016
  Receipt Date: 20220426
  Transmission Date: 20220721
  Serious: No
  Sender: FDA-Public Use
  Company Number: US-PFIZER INC-2019445709

PATIENT
  Age: 46 Year
  Sex: Female

DRUGS (2)
  1. IBRANCE [Suspect]
     Active Substance: PALBOCICLIB
     Indication: Breast cancer female
     Dosage: 125 MG, DAILY
     Route: 048
     Dates: start: 201712
  2. FASLODEX [Concomitant]
     Active Substance: FULVESTRANT
     Dosage: UNK
     Dates: start: 201712

REACTIONS (7)
  - Neoplasm progression [Unknown]
  - Breast discharge [Unknown]
  - Hypoaesthesia [Unknown]
  - Neck pain [Unknown]
  - Back pain [Unknown]
  - Spinal pain [Unknown]
  - Fatigue [Unknown]
